FAERS Safety Report 22535871 (Version 1)
Quarter: 2023Q2

REPORT INFORMATION
  Report Type: Spontaneous
  Country: US (occurrence: US)
  Receive Date: 20230608
  Receipt Date: 20230608
  Transmission Date: 20230722
  Serious: No
  Sender: FDA-Public Use
  Company Number: US-NIPPON SHINYAKU-NIP-2023-000021

PATIENT
  Sex: Male

DRUGS (1)
  1. VILTEPSO [Suspect]
     Active Substance: VILTOLARSEN
     Indication: Product used for unknown indication
     Route: 042

REACTIONS (2)
  - Cystatin C increased [Unknown]
  - Protein urine present [Unknown]
